FAERS Safety Report 5492497-3 (Version None)
Quarter: 2007Q4

REPORT INFORMATION
  Report Type: 
  Country: None (occurrence: None)
  Receive Date: 20071022
  Receipt Date: 20071011
  Transmission Date: 20080405
  Serious: Yes (Hospitalization)
  Sender: FDA-Public Use
  Company Number: US-BOEHRINGER INGELHEIM PHARMACEUTICALS, INC.-2007-BP-01896BP

PATIENT
  Age: 66 Year
  Sex: Male

DRUGS (2)
  1. MIRAPEX [Suspect]
     Indication: PARKINSON'S DISEASE
     Dates: start: 20000801, end: 20051001
  2. REQUIP [Suspect]
     Indication: PARKINSON'S DISEASE
     Dates: start: 20000801, end: 20051001

REACTIONS (6)
  - CONFUSIONAL STATE [None]
  - DELIRIUM [None]
  - ECONOMIC PROBLEM [None]
  - EMOTIONAL DISORDER [None]
  - GAMBLING [None]
  - OBSESSIVE-COMPULSIVE DISORDER [None]
